FAERS Safety Report 20833418 (Version 1)
Quarter: 2022Q2

REPORT INFORMATION
  Report Type: Spontaneous
  Country: US (occurrence: US)
  Receive Date: 20220516
  Receipt Date: 20220516
  Transmission Date: 20220720
  Serious: No
  Sender: FDA-Public Use
  Company Number: US-PFIZER INC-202200686758

PATIENT
  Age: 79 Year
  Sex: Male
  Weight: 77.11 kg

DRUGS (6)
  1. PAXLOVID [Suspect]
     Active Substance: NIRMATRELVIR\RITONAVIR
     Indication: COVID-19 treatment
     Dosage: PF-07321332 300 MG/RITONAVIR 100 MG; 2X/DAY
     Dates: start: 20220430, end: 20220504
  2. UROXATRAL [Concomitant]
     Active Substance: ALFUZOSIN HYDROCHLORIDE
     Dosage: 10 MG, 1X/DAY (10MG, ONCE A DAY IN THE EVENING)
     Dates: end: 20220429
  3. ATORVASTATIN [Concomitant]
     Active Substance: ATORVASTATIN
     Dosage: 20 MG, 1X/DAY (20 MG, ONCE A DAY )
     Dates: end: 20220429
  4. CARVEDILOL [Concomitant]
     Active Substance: CARVEDILOL
     Indication: Extrasystoles
     Dosage: 3.125 MG, 2X/DAY (3.125MG, TWO PER DAY, ONE MORNIGN ONE EVNING )
  5. GABAPENTIN [Concomitant]
     Active Substance: GABAPENTIN
     Dosage: 300 MG, 2X/DAY (300MG, ONE MORNING 2 IN E VEING )
  6. AVODART [Concomitant]
     Active Substance: DUTASTERIDE
     Indication: Prostatic disorder
     Dosage: 0.5 MG, 1X/DAY (0.5MG ONCE A DAY IN MORNING)

REACTIONS (3)
  - Symptom recurrence [Not Recovered/Not Resolved]
  - Rhinorrhoea [Not Recovered/Not Resolved]
  - Cough [Not Recovered/Not Resolved]

NARRATIVE: CASE EVENT DATE: 20220508
